FAERS Safety Report 5701036-0 (Version None)
Quarter: 2008Q2

REPORT INFORMATION
  Report Type: 
  Country: None (occurrence: None)
  Receive Date: 20080410
  Receipt Date: 20080402
  Transmission Date: 20081010
  Serious: Yes (Life-Threatening, Hospitalization, Disabling, Other)
  Sender: FDA-Public Use
  Company Number: GB-WYE-G01338508

PATIENT
  Age: 68 Year
  Sex: Female

DRUGS (3)
  1. EFFEXOR [Suspect]
     Indication: DEPRESSION
     Dosage: 125MG, FREQUENCY UNKNOWN
     Route: 048
     Dates: end: 20080312
  2. ANASTROZOLE [Concomitant]
     Indication: BREAST CANCER
  3. LITHIUM CARBONATE [Interacting]
     Indication: BIPOLAR DISORDER
     Dosage: 400MG, FREQUNCY UNKNOWN
     Dates: start: 20080101, end: 20080312

REACTIONS (3)
  - DRUG INTERACTION [None]
  - HYPONATRAEMIA [None]
  - POLYDIPSIA [None]
